FAERS Safety Report 26115290 (Version 1)
Quarter: 2025Q4

REPORT INFORMATION
  Report Type: Spontaneous
  Country: CH (occurrence: CH)
  Receive Date: 20251203
  Receipt Date: 20251203
  Transmission Date: 20260117
  Serious: Yes (Other)
  Sender: NOVARTIS
  Company Number: None

PATIENT
  Age: 48 Year
  Sex: Male
  Weight: 70 kg

DRUGS (10)
  1. LEQVIO [Suspect]
     Active Substance: INCLISIRAN SODIUM
     Indication: Type IIa hyperlipidaemia
     Dosage: 284 MG (UNDER THE SKIN EVERY 3 MONTHS)
     Route: 058
     Dates: start: 202409, end: 202412
  2. ESOMEPRAZOLE [Concomitant]
     Active Substance: ESOMEPRAZOLE
     Indication: Product used for unknown indication
     Dosage: 20 MG, Q24H
     Route: 065
  3. ASPIRIN [Concomitant]
     Active Substance: ASPIRIN
     Indication: Product used for unknown indication
     Dosage: 100 MG, Q24H
     Route: 065
  4. NEBIDO [Concomitant]
     Active Substance: TESTOSTERONE UNDECANOATE
     Indication: Product used for unknown indication
     Dosage: 1000 MG, Q3MO (1000MG INTRAMUSCULARLY EVERY 12 WEEKS)
     Route: 030
     Dates: start: 202012
  5. Acetylsalicylic acid;Metamizole [Concomitant]
     Indication: Product used for unknown indication
     Dosage: 500 MG, Q24H, IF REQUIRED
     Route: 065
  6. ACETAMINOPHEN [Concomitant]
     Active Substance: ACETAMINOPHEN
     Indication: Product used for unknown indication
     Dosage: 500 MG, Q6H, IF REQUIRED
     Route: 065
  7. REPATHA [Concomitant]
     Active Substance: EVOLOCUMAB
     Indication: Product used for unknown indication
     Dosage: 140 MG, (2020 A FEW MONTHS REPATHA 2X PER MONTH SINCE 09/2021 REPATHA 2X PER MONTH UNTIL ? RESTART R
     Route: 065
  8. PITAVASTATIN CALCIUM [Concomitant]
     Active Substance: PITAVASTATIN CALCIUM
     Indication: Product used for unknown indication
     Dosage: 2020: A FEW MONTHS 1X DAILY 09/2021 TO PROBABLY 07/2024 1XT DAILY SINCE 07/2025 1X DAILY
     Route: 065
  9. CLONAZEPAM [Concomitant]
     Active Substance: CLONAZEPAM
     Indication: Product used for unknown indication
     Dosage: 1 DRP, Q8H
     Route: 065
  10. METOPROLOL [Concomitant]
     Active Substance: METOPROLOL
     Indication: Product used for unknown indication
     Dosage: 25 MG, Q24H, IF REQUIRED
     Route: 065

REACTIONS (11)
  - Dizziness [Recovered/Resolved]
  - Muscle spasms [Recovered/Resolved]
  - Fatigue [Recovered/Resolved]
  - Abdominal pain [Recovered/Resolved]
  - Glossodynia [Recovered/Resolved]
  - Flushing [Recovered/Resolved]
  - Aphthous ulcer [Recovered/Resolved]
  - Skin papilloma [Recovered/Resolved]
  - Tinnitus [Recovered/Resolved]
  - Erectile dysfunction [Recovered/Resolved]
  - Tendon pain [Recovered/Resolved]

NARRATIVE: CASE EVENT DATE: 20240901
